FAERS Safety Report 8823987 (Version 1)
Quarter: 2012Q4

REPORT INFORMATION
  Report Type: 
  Country: GB (occurrence: GB)
  Receive Date: 20121003
  Receipt Date: 20121003
  Transmission Date: 20130627
  Serious: Yes (Hospitalization)
  Sender: FDA-Public Use
  Company Number: GB-009507513-1209GBR011327

PATIENT
  Age: 87 Year
  Sex: Male

DRUGS (1)
  1. ZISPIN SOLTAB [Suspect]
     Indication: DEPRESSION
     Dosage: 15 mg, hs at night
     Route: 048
     Dates: start: 201103, end: 201103

REACTIONS (4)
  - Loss of consciousness [Recovered/Resolved]
  - Gait disturbance [Recovered/Resolved]
  - Atrial fibrillation [Recovered/Resolved]
  - Unresponsive to stimuli [Recovered/Resolved]
